FAERS Safety Report 9458290 (Version 2)
Quarter: 2013Q4

REPORT INFORMATION
  Report Type: Spontaneous
  Country: US (occurrence: US)
  Receive Date: 20130814
  Receipt Date: 20131023
  Transmission Date: 20140711
  Serious: Yes (Other)
  Sender: FDA-Public Use
  Company Number: US-TEVA-425542USA

PATIENT
  Age: 20 Year
  Sex: Male

DRUGS (1)
  1. CLARAVIS [Suspect]
     Route: 048
     Dates: start: 20130605, end: 201306

REACTIONS (3)
  - Abscess limb [Recovered/Resolved]
  - Pain [Recovered/Resolved]
  - Ingrown hair [Recovered/Resolved]
